FAERS Safety Report 15954093 (Version 1)
Quarter: 2019Q1

REPORT INFORMATION
  Report Type: Spontaneous
  Country: US (occurrence: US)
  Receive Date: 20190213
  Receipt Date: 20190213
  Transmission Date: 20190417
  Serious: Yes (Other)
  Sender: FDA-Public Use
  Company Number: US-PFIZER INC-2019055773

PATIENT

DRUGS (2)
  1. FLUCONAZOLE. [Suspect]
     Active Substance: FLUCONAZOLE
     Dosage: UNK
     Route: 064
  2. DIFLUCAN [Suspect]
     Active Substance: FLUCONAZOLE
     Dosage: UNK
     Route: 064

REACTIONS (2)
  - Cardiac disorder [Unknown]
  - Maternal exposure during pregnancy [Unknown]
